FAERS Safety Report 6092618-8 (Version None)
Quarter: 2009Q1

REPORT INFORMATION
  Report Type: 
  Country: None (occurrence: None)
  Receive Date: 20090223
  Receipt Date: 20090223
  Transmission Date: 20090719
  Serious: Yes (Other)
  Sender: FDA-Public Use
  Company Number: None

PATIENT
  Age: 38 Year
  Sex: Female
  Weight: 107.9561 kg

DRUGS (2)
  1. PREDNISONE TAB [Suspect]
     Indication: RENAL TRANSPLANT
     Dosage: 2MG DAILY PO
     Route: 048
  2. PREDNISONE TAB [Suspect]
     Indication: SYSTEMIC LUPUS ERYTHEMATOSUS
     Dosage: 2MG DAILY PO
     Route: 048

REACTIONS (1)
  - OSTEONECROSIS [None]
